FAERS Safety Report 4534835-1 (Version None)
Quarter: 2004Q4

REPORT INFORMATION
  Report Type: 
  Country: None (occurrence: None)
  Receive Date: 20041222
  Receipt Date: 20040414
  Transmission Date: 20050328
  Serious: No
  Sender: FDA-Public Use
  Company Number: US-BRISTOL-MYERS SQUIBB COMPANY-12564092

PATIENT
  Age: 71 Year
  Sex: Male

DRUGS (1)
  1. PRAVACHOL [Suspect]
     Dates: start: 19980901, end: 20040401

REACTIONS (4)
  - AMNESIA [None]
  - BALANCE DISORDER [None]
  - FEELING ABNORMAL [None]
  - MUSCULAR WEAKNESS [None]
